FAERS Safety Report 18866566 (Version 1)
Quarter: 2021Q1

REPORT INFORMATION
  Report Type: Spontaneous
  Country: US (occurrence: US)
  Receive Date: 20210209
  Receipt Date: 20210209
  Transmission Date: 20210420
  Serious: Yes (Life-Threatening)
  Sender: FDA-Public Use
  Company Number: None

PATIENT
  Age: 23 Year
  Sex: Female
  Weight: 54.45 kg

DRUGS (3)
  1. ARMODAFINIL. [Suspect]
     Active Substance: ARMODAFINIL
     Indication: HYPERSOMNIA
     Dates: start: 20160101, end: 20160428
  2. ARMODAFINIL. [Concomitant]
     Active Substance: ARMODAFINIL
     Dates: start: 20170101, end: 20170608
  3. MODAFINIL. [Concomitant]
     Active Substance: MODAFINIL
     Dates: start: 20170608, end: 20180108

REACTIONS (1)
  - Somnambulism [None]

NARRATIVE: CASE EVENT DATE: 20160428
